FAERS Safety Report 25136312 (Version 1)
Quarter: 2025Q1

REPORT INFORMATION
  Report Type: Spontaneous
  Country: US (occurrence: None)
  Receive Date: 20250328
  Receipt Date: 20250328
  Transmission Date: 20250409
  Serious: Yes (Hospitalization)
  Sender: FDA-CTU
  Company Number: None

PATIENT
  Age: 59 Year
  Sex: Female

DRUGS (13)
  1. CLINDAMYCIN [Suspect]
     Active Substance: CLINDAMYCIN
     Indication: Antibiotic prophylaxis
     Dosage: FREQUENCY : 3 TIMES A DAY;?
     Route: 048
     Dates: start: 20250115, end: 20250115
  2. olanzapine 17.5 mg daily [Concomitant]
  3. aripiprazole 30 mg daily [Concomitant]
  4. divalproex ER 2,000 mg daily [Concomitant]
  5. memantine 10 mg twice daily [Concomitant]
  6. rivastigmine 3 mg twice daily [Concomitant]
  7. melatonin 10 mg in the evening [Concomitant]
  8. LEVOTHYROXINE [Concomitant]
     Active Substance: LEVOTHYROXINE
  9. multivitamin daily [Concomitant]
  10. polyethylene glycol powder 17 gm daily [Concomitant]
  11. flonase nasal spray 2 sprays AM [Concomitant]
  12. estradiol vaginal cream 2 gm Mondays at bedtime [Concomitant]
  13. lorazepam 0.5 mg q 8 hrs as needed [Concomitant]

REACTIONS (1)
  - Drug hypersensitivity [None]

NARRATIVE: CASE EVENT DATE: 20250116
